FAERS Safety Report 7801316-9 (Version None)
Quarter: 2011Q4

REPORT INFORMATION
  Report Type: 
  Country: None (occurrence: None)
  Receive Date: 20111006
  Receipt Date: 20111006
  Transmission Date: 20120403
  Serious: Yes (Hospitalization)
  Sender: FDA-Public Use
  Company Number: None

PATIENT
  Age: 65 Year
  Sex: Female
  Weight: 119.1 kg

DRUGS (12)
  1. COUMADIN [Suspect]
     Indication: DEEP VEIN THROMBOSIS
     Dosage: CHRONIC
  2. ADVAIR DISKUS 100/50 [Concomitant]
  3. ALAVERT [Concomitant]
  4. LASIX [Concomitant]
  5. ASPIRIN [Suspect]
     Indication: DEEP VEIN THROMBOSIS
     Dosage: 81MG DAILY PO CHRONIC
     Route: 048
  6. CALCIUM +D [Concomitant]
  7. RECLAST [Concomitant]
  8. VIT D [Concomitant]
  9. ZOCOR [Concomitant]
  10. ALBUTEROL [Concomitant]
  11. ALDACTONE [Concomitant]
  12. M.V.I. [Concomitant]

REACTIONS (5)
  - HAEMATURIA [None]
  - FLANK PAIN [None]
  - INTERNATIONAL NORMALISED RATIO INCREASED [None]
  - HYDRONEPHROSIS [None]
  - THROMBOSIS [None]
